FAERS Safety Report 6449560-X (Version None)
Quarter: 2009Q4

REPORT INFORMATION
  Report Type: 
  Country: None (occurrence: None)
  Receive Date: 20091120
  Receipt Date: 20091109
  Transmission Date: 20100525
  Serious: Yes (Other)
  Sender: FDA-Public Use
  Company Number: CH-GENENTECH-294208

PATIENT
  Sex: Female

DRUGS (1)
  1. BEVACIZUMAB [Suspect]
     Indication: ASTROCYTOMA
     Dosage: UNK
     Route: 065
     Dates: start: 20090606

REACTIONS (1)
  - HEMIPARESIS [None]
